FAERS Safety Report 15230570 (Version 1)
Quarter: 2018Q3

REPORT INFORMATION
  Report Type: Spontaneous
  Country: AR (occurrence: AR)
  Receive Date: 20180802
  Receipt Date: 20180802
  Transmission Date: 20181010
  Serious: Yes (Other)
  Sender: FDA-Public Use
  Company Number: AR-ASTRAZENECA-2018SE39654

PATIENT
  Age: 715 Month
  Sex: Female

DRUGS (2)
  1. FOLIC ACID. [Concomitant]
     Active Substance: FOLIC ACID
  2. LYNPARZA [Suspect]
     Active Substance: OLAPARIB
     Indication: OVARIAN CANCER
     Route: 048
     Dates: start: 20170612

REACTIONS (8)
  - Rash [Recovered/Resolved]
  - Red blood cell count decreased [Recovering/Resolving]
  - Arthropod bite [Unknown]
  - Joint swelling [Not Recovered/Not Resolved]
  - Onychoclasis [Unknown]
  - Macrocytosis [Unknown]
  - Carbohydrate antigen 125 increased [Unknown]
  - Anisocytosis [Unknown]

NARRATIVE: CASE EVENT DATE: 201801
